FAERS Safety Report 19881001 (Version 1)
Quarter: 2021Q3

REPORT INFORMATION
  Report Type: Spontaneous
  Country: IE (occurrence: IE)
  Receive Date: 20210924
  Receipt Date: 20210924
  Transmission Date: 20211014
  Serious: Yes (Death, Other)
  Sender: FDA-Public Use
  Company Number: IE-SA-2021SA290888

PATIENT
  Age: 87 Year
  Sex: Female
  Weight: 82.6 kg

DRUGS (12)
  1. ELIQUIS [Suspect]
     Active Substance: APIXABAN
     Indication: THROMBOSIS PROPHYLAXIS
     Dosage: 20MG DAILY, 5 DAYS (AT THIS DOSE). TREATMENT DOSE. DOSE REDUCED 5.5 DAYS BEFORE REACTION.
     Route: 048
     Dates: start: 20210604, end: 20210609
  2. ELIQUIS [Suspect]
     Active Substance: APIXABAN
     Indication: PULMONARY EMBOLISM
     Dosage: DAILY DOSE: 10MG 5 DAYS AT THIS DOSE (MAINTENANCE DOSE)(10.5 DAYS OF TOTAL TREATMENT)
     Route: 048
     Dates: start: 20210609, end: 20210614
  3. CO?AMOXICLAVE [Concomitant]
     Active Substance: AMOXICILLIN\CLAVULANATE POTASSIUM
     Indication: INFECTION
     Dosage: 625MG, TDS, PO
     Route: 048
     Dates: start: 20210529, end: 20210603
  4. ASPIRINA [Concomitant]
     Active Substance: ASPIRIN
     Indication: MYOCARDIAL ISCHAEMIA
  5. CLEXANE [Suspect]
     Active Substance: ENOXAPARIN SODIUM
     Indication: PULMONARY EMBOLISM
     Dosage: 1.5MG/KG = 120MG THERAPY STOPPED 10.5 DAYS BEFORE REACTION
     Route: 058
     Dates: start: 20210528, end: 20210603
  6. CLOPIDOGREL [Concomitant]
     Active Substance: CLOPIDOGREL BISULFATE
     Indication: ANTIPLATELET THERAPY
     Dosage: UNK
     Dates: end: 20210603
  7. PANTOPRAZOLE EG [Concomitant]
     Active Substance: PANTOPRAZOLE SODIUM
     Dosage: 40MG, OD, POTHERAPY START DATE BEFORE 28/MAY/2021
     Route: 048
     Dates: end: 20210614
  8. ASPIRINA [Concomitant]
     Active Substance: ASPIRIN
     Indication: PERCUTANEOUS CORONARY INTERVENTION
     Dosage: 75MG, OD, POTHERAPY START DATE BEFORE 28/MAY/2021
     Route: 048
     Dates: end: 20210614
  9. ASPIRINA [Concomitant]
     Active Substance: ASPIRIN
     Indication: CEREBROVASCULAR ACCIDENT
  10. LOSARTAN. [Concomitant]
     Active Substance: LOSARTAN
     Indication: HYPERTENSION
     Dosage: 50MG, OD, POTHERAPY START DATE BEFORE 28/MAY/2021
     Route: 048
     Dates: end: 20210614
  11. MIRTAZAPINE A [Concomitant]
     Active Substance: MIRTAZAPINE
     Indication: SEDATION
     Dosage: 7.5MG, OD, POTHERAPY START DATE BEFORE 28/MAY/2021
     Route: 048
     Dates: end: 20210613
  12. ATORVASTATIN [Concomitant]
     Active Substance: ATORVASTATIN
     Indication: DYSLIPIDAEMIA
     Dosage: 80MG, OD, POTHERAPY START DATE BEFORE 28/MAY/2021
     Route: 048
     Dates: end: 20210613

REACTIONS (3)
  - Haemorrhage intracranial [Fatal]
  - Cerebral mass effect [Fatal]
  - Hypertension [Fatal]

NARRATIVE: CASE EVENT DATE: 20210614
